FAERS Safety Report 7769692-3 (Version None)
Quarter: 2011Q3

REPORT INFORMATION
  Report Type: 
  Country: None (occurrence: None)
  Receive Date: 20110922
  Receipt Date: 20110524
  Transmission Date: 20111222
  Serious: No
  Sender: FDA-Public Use
  Company Number: US-ASTRAZENECA-2009SE33203

PATIENT
  Age: 47 Year
  Sex: Female
  Weight: 72.6 kg

DRUGS (15)
  1. SEROQUEL [Suspect]
     Route: 048
     Dates: start: 20070724
  2. NAVANE [Concomitant]
  3. CLOZAPINE [Concomitant]
     Dates: start: 20060101
  4. SIMVASTATIN [Concomitant]
     Dates: start: 20070803
  5. SEROQUEL [Suspect]
     Indication: MANIA
     Route: 048
     Dates: start: 19980101, end: 20090101
  6. CYMBALTA [Concomitant]
     Dates: start: 20070803
  7. SEROQUEL [Suspect]
     Route: 048
     Dates: start: 20070724
  8. ABILIFY [Concomitant]
     Dates: start: 20080101
  9. NEXIUM [Concomitant]
     Dates: start: 20070723
  10. GABAPENTIN [Concomitant]
     Dates: start: 20070723
  11. SEROQUEL [Suspect]
     Indication: BIPOLAR DISORDER
     Route: 048
     Dates: start: 19980101, end: 20090101
  12. TERBINAFINE HCL [Concomitant]
     Dates: start: 20071102
  13. ECONAZOLE CRE [Concomitant]
     Dosage: 1 %
     Dates: start: 20071102
  14. STELAZINE [Concomitant]
     Dates: start: 19890101, end: 19900101
  15. CLONIDINE [Concomitant]
     Dosage: 0.1 MG
     Dates: start: 20070723

REACTIONS (5)
  - BLOOD CHOLESTEROL INCREASED [None]
  - HYPERLIPIDAEMIA [None]
  - OBESITY [None]
  - TYPE 2 DIABETES MELLITUS [None]
  - BLOOD TRIGLYCERIDES INCREASED [None]
